FAERS Safety Report 5249379-1 (Version None)
Quarter: 2007Q1

REPORT INFORMATION
  Report Type: 
  Country: None (occurrence: None)
  Receive Date: 20070228
  Receipt Date: 20060929
  Transmission Date: 20070707
  Serious: No
  Sender: FDA-Public Use
  Company Number: S2006US15776

PATIENT
  Age: 43 Year
  Sex: Female
  Weight: 61.8 kg

DRUGS (1)
  1. VALTREX [Suspect]
     Indication: HERPES VIRUS INFECTION
     Route: 065

REACTIONS (4)
  - PRURITUS GENITAL [None]
  - VAGINAL CANDIDIASIS [None]
  - VAGINAL ERYTHEMA [None]
  - VAGINAL LESION [None]
